FAERS Safety Report 18568422 (Version 1)
Quarter: 2020Q4

REPORT INFORMATION
  Report Type: Spontaneous
  Country: DK (occurrence: DK)
  Receive Date: 20201202
  Receipt Date: 20201202
  Transmission Date: 20210114
  Serious: Yes (Hospitalization)
  Sender: FDA-Public Use
  Company Number: DK-SA-2020SA093522

PATIENT

DRUGS (6)
  1. OMEPRAZOL SANDOZ [OMEPRAZOLE] [Concomitant]
     Indication: DYSPEPSIA
     Dosage: STRENGTH: 20MG
     Route: 048
     Dates: start: 20141015
  2. VAGIFEM [Concomitant]
     Active Substance: ESTRADIOL
     Indication: VULVOVAGINAL DRYNESS
     Dosage: STRENGTH: 10 MICROGRAM.
     Route: 067
     Dates: start: 20151017
  3. EZETROL [Concomitant]
     Active Substance: EZETIMIBE
     Indication: HYPERCHOLESTEROLAEMIA
     Dosage: STRENGTH: 10MG
     Route: 048
     Dates: start: 20191002
  4. PANODIL [Concomitant]
     Active Substance: ACETAMINOPHEN
     Indication: PAIN
     Dosage: STRENGTH: 665MG
     Route: 048
     Dates: start: 20160722
  5. PRALUENT [Suspect]
     Active Substance: ALIROCUMAB
     Indication: HYPERCHOLESTEROLAEMIA
     Dosage: STRENGTH: 150 MG.
     Route: 058
     Dates: start: 20181113, end: 202010
  6. IBUMETIN [Concomitant]
     Active Substance: IBUPROFEN
     Indication: MYALGIA
     Dosage: 400 MG, PRN
     Route: 048
     Dates: end: 20201005

REACTIONS (8)
  - Pyrexia [Recovered/Resolved]
  - Pruritus [Recovered/Resolved]
  - Sluggishness [Recovered/Resolved]
  - Injection site haematoma [Recovered/Resolved]
  - Erythema [Recovered/Resolved]
  - Injection site pruritus [Recovered/Resolved]
  - Haematoma [Recovered/Resolved]
  - Skin discolouration [Recovered/Resolved]

NARRATIVE: CASE EVENT DATE: 202003
